FAERS Safety Report 9915777 (Version 1)
Quarter: 2014Q1

REPORT INFORMATION
  Report Type: Spontaneous
  Country: GB (occurrence: None)
  Receive Date: 20140218
  Receipt Date: 20140218
  Transmission Date: 20141002
  Serious: Yes (Hospitalization, Other)
  Sender: FDA-Public Use
  Company Number: 2014GR0049

PATIENT
  Age: 56 Year
  Sex: Male

DRUGS (4)
  1. KINERET (ANAKINRA), NOT AVAILABLE [Suspect]
     Indication: STILL^S DISEASE ADULT ONSET
     Route: 058
  2. METHYLPREDNISOLONE (METHYLPREDNISOLONE) (METHYLPREDNISOLONE) [Concomitant]
  3. METHOTREXATE (METHOTREXATE) (METHOTREXATE) [Concomitant]
  4. NSAIDS (NSAID^S) (NULL) [Concomitant]

REACTIONS (4)
  - Diffuse large B-cell lymphoma [None]
  - Interstitial granulomatous dermatitis [None]
  - Condition aggravated [None]
  - Arthritis [None]
